FAERS Safety Report 12552159 (Version 1)
Quarter: 2016Q3

REPORT INFORMATION
  Report Type: Spontaneous
  Country: US (occurrence: US)
  Receive Date: 20160713
  Receipt Date: 20160713
  Transmission Date: 20161109
  Serious: Yes (Other)
  Sender: FDA-Public Use
  Company Number: US-BAYER-2016-135544

PATIENT
  Age: 62 Year
  Sex: Female
  Weight: 107.9 kg

DRUGS (17)
  1. LISINOPRIL. [Concomitant]
     Active Substance: LISINOPRIL
  2. CARMELLOSE [Concomitant]
  3. AMBRISENTAN [Suspect]
     Active Substance: AMBRISENTAN
     Indication: SLEEP APNOEA SYNDROME
  4. OMEPRAZOLE. [Concomitant]
     Active Substance: OMEPRAZOLE
  5. RITUXAN [Concomitant]
     Active Substance: RITUXIMAB
  6. LEXAPRO [Concomitant]
     Active Substance: ESCITALOPRAM OXALATE
  7. TORSEMIDE. [Concomitant]
     Active Substance: TORSEMIDE
  8. GLIPIZIDE. [Concomitant]
     Active Substance: GLIPIZIDE
  9. NASALCROM [Concomitant]
     Active Substance: CROMOLYN SODIUM
  10. LEFLUNOMIDE. [Concomitant]
     Active Substance: LEFLUNOMIDE
  11. VESICARE [Concomitant]
     Active Substance: SOLIFENACIN SUCCINATE
  12. UPTRAVI [Suspect]
     Active Substance: SELEXIPAG
     Indication: PRODUCT USED FOR UNKNOWN INDICATION
  13. ADEMPAS [Suspect]
     Active Substance: RIOCIGUAT
     Indication: PRODUCT USED FOR UNKNOWN INDICATION
  14. AMBRISENTAN [Suspect]
     Active Substance: AMBRISENTAN
     Indication: PULMONARY ARTERIAL HYPERTENSION
     Dosage: 5 MG, QD
     Dates: start: 20150127
  15. KLOR-CON [Concomitant]
     Active Substance: POTASSIUM CHLORIDE
  16. LORTAB [Concomitant]
     Active Substance: ACETAMINOPHEN\HYDROCODONE BITARTRATE
  17. VITAMIN D [Concomitant]
     Active Substance: CHOLECALCIFEROL

REACTIONS (4)
  - Respiratory tract infection [None]
  - Headache [None]
  - Nasal congestion [None]
  - Myalgia [None]
